FAERS Safety Report 18741064 (Version 1)
Quarter: 2021Q1

REPORT INFORMATION
  Report Type: Spontaneous
  Country: US (occurrence: US)
  Receive Date: 20210114
  Receipt Date: 20210114
  Transmission Date: 20210419
  Serious: No
  Sender: FDA-Public Use
  Company Number: None

PATIENT
  Age: 36 Year
  Sex: Male
  Weight: 60.75 kg

DRUGS (1)
  1. OPMS KRATOM [Suspect]
     Active Substance: HERBALS\MITRAGYNINE

REACTIONS (4)
  - Product complaint [None]
  - Drug withdrawal syndrome [None]
  - Illness [None]
  - Substance dependence [None]

NARRATIVE: CASE EVENT DATE: 20201225
